FAERS Safety Report 6468857-0 (Version None)
Quarter: 2009Q4

REPORT INFORMATION
  Report Type: 
  Country: None (occurrence: None)
  Receive Date: 20091203
  Receipt Date: 20080624
  Transmission Date: 20100525
  Serious: Yes (Hospitalization, Other)
  Sender: FDA-Public Use
  Company Number: US-ELI_LILLY_AND_COMPANY-USA041285729

PATIENT
  Sex: Female
  Weight: 49.091 kg

DRUGS (3)
  1. CYMBALTA [Suspect]
     Indication: DEPRESSION
     Dosage: 30 MG, DAILY (1/D)
     Route: 048
     Dates: start: 20041001, end: 20041111
  2. CONCERTA [Concomitant]
     Indication: ATTENTION DEFICIT/HYPERACTIVITY DISORDER
     Dosage: 36 MG, EACH MORNING
     Route: 048
  3. PERCOGESIC [Concomitant]
     Dosage: UNK, AS NEEDED
     Route: 048

REACTIONS (7)
  - DIZZINESS [None]
  - DYSPEPSIA [None]
  - GASTROENTERITIS VIRAL [None]
  - HEPATITIS [None]
  - LOSS OF CONSCIOUSNESS [None]
  - NAUSEA [None]
  - VOMITING [None]
